FAERS Safety Report 5851531-9 (Version None)
Quarter: 2008Q3

REPORT INFORMATION
  Report Type: 
  Country: None (occurrence: None)
  Receive Date: 20080820
  Receipt Date: 20080807
  Transmission Date: 20090109
  Serious: Yes (Other)
  Sender: FDA-Public Use
  Company Number: US-ELI_LILLY_AND_COMPANY-US200808001421

PATIENT
  Sex: Female

DRUGS (3)
  1. EVISTA [Suspect]
     Indication: PROPHYLAXIS
     Dosage: 60 MG, DAILY (1/D)
     Dates: start: 19980101
  2. TYLENOL /USA/ [Concomitant]
  3. NEVANAC [Concomitant]

REACTIONS (4)
  - CATARACT [None]
  - EYE DISORDER [None]
  - SCAR [None]
  - VISUAL IMPAIRMENT [None]
